FAERS Safety Report 21096116 (Version 1)
Quarter: 2022Q3

REPORT INFORMATION
  Report Type: Spontaneous
  Country: US (occurrence: US)
  Receive Date: 20220718
  Receipt Date: 20220718
  Transmission Date: 20221026
  Serious: Yes (Other)
  Sender: FDA-Public Use
  Company Number: US-NOVARTISTESTPH-NVSC2022US160742

PATIENT
  Weight: 30 kg

DRUGS (1)
  1. KYMRIAH [Suspect]
     Active Substance: TISAGENLECLEUCEL
     Indication: Acute lymphocytic leukaemia
     Dosage: UNK UNK, ONCE/SINGLE (4.0E6 CAR-POSITIVE VIABLE T-CELLS)
     Route: 042
     Dates: start: 20220523

REACTIONS (1)
  - Post-depletion B-cell recovery [Unknown]
